FAERS Safety Report 16339108 (Version 2)
Quarter: 2019Q2

REPORT INFORMATION
  Report Type: Report from Study
  Country: PT (occurrence: PT)
  Receive Date: 20190521
  Receipt Date: 20190529
  Transmission Date: 20190711
  Serious: Yes (Death)
  Sender: FDA-Public Use
  Company Number: PT-PFIZER INC-2019213204

PATIENT
  Age: 69 Year
  Sex: Female
  Weight: 47 kg

DRUGS (2)
  1. LORLATINIB [Suspect]
     Active Substance: LORLATINIB
     Indication: LUNG ADENOCARCINOMA STAGE IV
     Dosage: 100 MG (4X25MG), 1X/DAY
     Route: 048
     Dates: start: 20190503, end: 20190511
  2. LEPICORTINOLO [PREDNISOLONE] [Concomitant]
     Active Substance: PREDNISOLONE
     Indication: RASH
     Dosage: 5 MG, 1X/DAY
     Route: 048
     Dates: start: 20190504, end: 20190512

REACTIONS (1)
  - Neoplasm progression [Fatal]

NARRATIVE: CASE EVENT DATE: 20190512
